FAERS Safety Report 24213665 (Version 3)
Quarter: 2024Q3

REPORT INFORMATION
  Report Type: Spontaneous
  Country: BR (occurrence: BR)
  Receive Date: 20240815
  Receipt Date: 20240819
  Transmission Date: 20241016
  Serious: Yes (Death, Life-Threatening, Other)
  Sender: GENMAB
  Company Number: BR-ABBVIE-5879368

PATIENT
  Age: 25 Year
  Sex: Female

DRUGS (1)
  1. EPCORITAMAB [Suspect]
     Active Substance: EPCORITAMAB
     Indication: Diffuse large B-cell lymphoma
     Dosage: UNK
     Route: 058

REACTIONS (7)
  - Cytokine release syndrome [Fatal]
  - Cytokine release syndrome [Fatal]
  - Immune effector cell-associated neurotoxicity syndrome [Recovering/Resolving]
  - Motor dysfunction [Recovering/Resolving]
  - Dysarthria [Unknown]
  - Dysphagia [Unknown]
  - Pyrexia [Not Recovered/Not Resolved]
